FAERS Safety Report 6112093-4 (Version None)
Quarter: 2009Q1

REPORT INFORMATION
  Report Type: 
  Country: None (occurrence: None)
  Receive Date: 20090311
  Receipt Date: 20090226
  Transmission Date: 20090719
  Serious: Yes (Hospitalization)
  Sender: FDA-Public Use
  Company Number: FR-GENENTECH-277602

PATIENT
  Age: 32 Year
  Sex: Female

DRUGS (1)
  1. ACTIVASE [Suspect]
     Indication: ISCHAEMIC STROKE
     Dosage: 90 MG, UNK
     Route: 042
     Dates: start: 20090208

REACTIONS (2)
  - ANGIOEDEMA [None]
  - HYPOCOAGULABLE STATE [None]
